FAERS Safety Report 21950098 (Version 9)
Quarter: 2023Q4

REPORT INFORMATION
  Report Type: Report from Study
  Country: JP (occurrence: JP)
  Receive Date: 20230203
  Receipt Date: 20231016
  Transmission Date: 20240110
  Serious: Yes (Hospitalization, Other)
  Sender: FDA-Public Use
  Company Number: JP-JNJFOC-20230120550

PATIENT
  Age: 82 Year
  Sex: Female
  Weight: 40.8 kg

DRUGS (20)
  1. BORTEZOMIB [Suspect]
     Active Substance: BORTEZOMIB
     Indication: Plasma cell myeloma
     Dosage: UNK
     Route: 065
  2. DARATUMUMAB\HYALURONIDASE-FIHJ [Suspect]
     Active Substance: DARATUMUMAB\HYALURONIDASE-FIHJ
     Indication: Plasma cell myeloma
     Dosage: 1800 MILLIGRAM, QD
     Route: 058
     Dates: start: 20221108, end: 20221108
  3. DARATUMUMAB\HYALURONIDASE-FIHJ [Suspect]
     Active Substance: DARATUMUMAB\HYALURONIDASE-FIHJ
     Dosage: 1800 MILLIGRAM, QD
     Route: 058
     Dates: start: 20221115, end: 20221115
  4. DARATUMUMAB\HYALURONIDASE-FIHJ [Suspect]
     Active Substance: DARATUMUMAB\HYALURONIDASE-FIHJ
     Dosage: 1800 MILLIGRAM, QD
     Route: 058
     Dates: start: 20221122, end: 20221122
  5. DARATUMUMAB\HYALURONIDASE-FIHJ [Suspect]
     Active Substance: DARATUMUMAB\HYALURONIDASE-FIHJ
     Dosage: 1800 MILLIGRAM, QD
     Route: 058
     Dates: start: 20221212, end: 20221212
  6. DARATUMUMAB\HYALURONIDASE-FIHJ [Suspect]
     Active Substance: DARATUMUMAB\HYALURONIDASE-FIHJ
     Dosage: 1800 MILLIGRAM, QD
     Route: 058
     Dates: start: 20221219, end: 20221219
  7. DARATUMUMAB\HYALURONIDASE-FIHJ [Suspect]
     Active Substance: DARATUMUMAB\HYALURONIDASE-FIHJ
     Dosage: 1800 MILLIGRAM, QD
     Route: 058
     Dates: start: 20221226, end: 20221226
  8. DARATUMUMAB\HYALURONIDASE-FIHJ [Suspect]
     Active Substance: DARATUMUMAB\HYALURONIDASE-FIHJ
     Dosage: 1800 MILLIGRAM, QD
     Route: 058
     Dates: start: 20230328, end: 20230328
  9. DARATUMUMAB\HYALURONIDASE-FIHJ [Suspect]
     Active Substance: DARATUMUMAB\HYALURONIDASE-FIHJ
     Dosage: 1800 MILLIGRAM, QD
     Route: 058
     Dates: start: 20230404, end: 20230404
  10. DARATUMUMAB\HYALURONIDASE-FIHJ [Suspect]
     Active Substance: DARATUMUMAB\HYALURONIDASE-FIHJ
     Dosage: 1800 MILLIGRAM, QD
     Route: 058
     Dates: start: 20230411
  11. DEXAMETHASONE [Concomitant]
     Active Substance: DEXAMETHASONE
     Indication: Plasma cell myeloma
     Dosage: UNK
     Route: 065
  12. CEFTAZIDIME [Concomitant]
     Active Substance: CEFTAZIDIME
     Indication: Pyrexia
     Dosage: 2 GRAM, QD
     Route: 065
     Dates: start: 20221118, end: 20221121
  13. Denosine [Concomitant]
     Indication: Cytomegalovirus enterocolitis
     Dosage: 180 MILLIGRAM, QD
     Route: 065
     Dates: start: 20230118, end: 20230124
  14. KENKETU GLOVENIN-I [Concomitant]
     Active Substance: HUMAN IMMUNOGLOBULIN G
     Indication: Cytomegalovirus enterocolitis
     Dosage: 5000 MILLIGRAM, QD
     Route: 065
     Dates: start: 20230118, end: 20230120
  15. PRIMPERAN [Concomitant]
     Active Substance: METOCLOPRAMIDE HYDROCHLORIDE
     Indication: Vomiting
     Dosage: 10 MILLIGRAM, QD
     Route: 065
     Dates: start: 20221118, end: 20221118
  16. CALCIUM CHLORIDE\POTASSIUM CHLORIDE\SODIUM CHLORIDE\SODIUM LACTATE\SOR [Concomitant]
     Active Substance: CALCIUM CHLORIDE\POTASSIUM CHLORIDE\SODIUM CHLORIDE\SODIUM LACTATE\SORBITOL
     Indication: Hydronephrosis
     Dosage: 1500 MILLILITER, QD
     Route: 065
     Dates: start: 20230110, end: 20230113
  17. CEFOPERAZONE SODIUM\SULBACTAM SODIUM [Concomitant]
     Active Substance: CEFOPERAZONE SODIUM\SULBACTAM SODIUM
     Indication: Urinary tract infection
     Dosage: 1 GRAM, BID
     Route: 065
     Dates: start: 20230110, end: 20230114
  18. BIAPENEM [Concomitant]
     Active Substance: BIAPENEM
     Indication: Urinary tract infection
     Dosage: 0.3 GRAM, TID
     Route: 065
     Dates: start: 20230114, end: 20230120
  19. AMINO ACIDS\DEXTROSE\ELECTROLYTES NOS\VITAMINS [Concomitant]
     Active Substance: AMINO ACIDS\DEXTROSE\ELECTROLYTES NOS\VITAMINS
     Indication: Hydronephrosis
     Dosage: 500 MILLILITER, QD
     Route: 065
     Dates: start: 20230110, end: 20230113
  20. AUGMENTIN [Concomitant]
     Active Substance: AMOXICILLIN\CLAVULANATE POTASSIUM
     Indication: Urinary tract infection
     Dosage: 3 DOSAGE FORM, QD
     Route: 048
     Dates: start: 20230501, end: 20230507

REACTIONS (5)
  - Hydronephrosis [Recovering/Resolving]
  - Urinary tract infection [Recovering/Resolving]
  - Cytomegalovirus enterocolitis [Recovering/Resolving]
  - Vomiting [Recovered/Resolved]
  - Pyrexia [Recovered/Resolved]

NARRATIVE: CASE EVENT DATE: 20221118
